FAERS Safety Report 7575385-8 (Version None)
Quarter: 2011Q2

REPORT INFORMATION
  Report Type: 
  Country: None (occurrence: None)
  Receive Date: 20110627
  Receipt Date: 20110617
  Transmission Date: 20111010
  Serious: Yes (Hospitalization)
  Sender: FDA-Public Use
  Company Number: US-ASTRAZENECA-2011SE37158

PATIENT
  Age: 72 Year
  Sex: Female

DRUGS (2)
  1. ASACOL [Suspect]
  2. CRESTOR [Suspect]
     Route: 048

REACTIONS (1)
  - MALAISE [None]
